FAERS Safety Report 8185117-0 (Version None)
Quarter: 2012Q1

REPORT INFORMATION
  Report Type: 
  Country: None (occurrence: None)
  Receive Date: 20120213
  Receipt Date: 20100419
  Transmission Date: 20120608
  Serious: Yes (Hospitalization)
  Sender: FDA-Public Use
  Company Number: E2020-06450-SPO-US

PATIENT
  Age: 70 Year
  Sex: Male
  Weight: 75 kg

DRUGS (21)
  1. UROXATRAL [Concomitant]
  2. POTASSIUM CHLORIDE [Concomitant]
  3. XANAX [Concomitant]
  4. TAZTIA XT (DILTIAZEM HYDROCHLORIDE) [Concomitant]
  5. METOPROLOL ER (METOPROLOL) [Concomitant]
  6. QUINAPRIL HCL [Concomitant]
  7. AVODART [Concomitant]
  8. MULTIVITAMIN [Concomitant]
  9. FUROSEMIDE (FUROSEMIDE) [Concomitant]
  10. ZETIA [Concomitant]
  11. ARICEPT [Suspect]
     Indication: AMNESIA
     Dosage: 5 MG, 1 IN 1 D, ORAL 10 MG, 1 IN 1 D, ORAL
     Route: 048
     Dates: start: 20100512, end: 20100601
  12. ARICEPT [Suspect]
     Indication: DEMENTIA
     Dosage: 5 MG, 1 IN 1 D, ORAL 10 MG, 1 IN 1 D, ORAL
     Route: 048
     Dates: start: 20100512, end: 20100601
  13. ARICEPT [Suspect]
     Indication: AMNESIA
     Dosage: 5 MG, 1 IN 1 D, ORAL 10 MG, 1 IN 1 D, ORAL
     Route: 048
     Dates: start: 20100414, end: 20100511
  14. ARICEPT [Suspect]
     Indication: DEMENTIA
     Dosage: 5 MG, 1 IN 1 D, ORAL 10 MG, 1 IN 1 D, ORAL
     Route: 048
     Dates: start: 20100414, end: 20100511
  15. ARICEPT [Suspect]
     Indication: AMNESIA
     Dosage: 5 MG, 1 IN 1 D, ORAL 10 MG, 1 IN 1 D, ORAL
     Route: 048
     Dates: start: 20100601
  16. ARICEPT [Suspect]
     Indication: DEMENTIA
     Dosage: 5 MG, 1 IN 1 D, ORAL 10 MG, 1 IN 1 D, ORAL
     Route: 048
     Dates: start: 20100601
  17. ALBUTEROL [Concomitant]
  18. ADVAIR HFA [Concomitant]
  19. NORVASC [Concomitant]
  20. VITAMIN D [Concomitant]
  21. NAMENDA [Concomitant]

REACTIONS (17)
  - SOMNOLENCE [None]
  - MALAISE [None]
  - PNEUMONIA BACTERIAL [None]
  - INSOMNIA [None]
  - DIARRHOEA [None]
  - BACK PAIN [None]
  - ERYTHEMA [None]
  - EYE IRRITATION [None]
  - DIZZINESS [None]
  - NAUSEA [None]
  - VITAMIN D DECREASED [None]
  - ASTHENIA [None]
  - GAIT DISTURBANCE [None]
  - COLD SWEAT [None]
  - VISION BLURRED [None]
  - NIGHTMARE [None]
  - OEDEMA PERIPHERAL [None]
